FAERS Safety Report 5825793-8 (Version None)
Quarter: 2008Q3

REPORT INFORMATION
  Report Type: 
  Country: None (occurrence: None)
  Receive Date: 20080729
  Receipt Date: 20080721
  Transmission Date: 20090109
  Serious: Yes (Hospitalization)
  Sender: FDA-Public Use
  Company Number: FR-ASTRAZENECA-2008CG01094

PATIENT
  Age: 17779 Day
  Sex: Male

DRUGS (4)
  1. CASODEX [Suspect]
     Route: 048
     Dates: start: 20080610
  2. IXPRIM [Suspect]
     Indication: BACK PAIN
     Route: 048
     Dates: start: 20080601
  3. BI-PROFENID [Concomitant]
     Indication: BACK PAIN
  4. DECAPEPTYL [Concomitant]
     Dates: start: 20080619

REACTIONS (2)
  - THROMBOCYTOPENIA [None]
  - TRANSAMINASES INCREASED [None]
